FAERS Safety Report 16062905 (Version 3)
Quarter: 2020Q3

REPORT INFORMATION
  Report Type: Spontaneous
  Country: US (occurrence: US)
  Receive Date: 20190312
  Receipt Date: 20200902
  Transmission Date: 20201102
  Serious: Yes (Hospitalization)
  Sender: FDA-Public Use
  Company Number: US-PFIZER INC-2019098128

PATIENT
  Age: 40 Year
  Sex: Female
  Weight: 59 kg

DRUGS (4)
  1. PREMARIN [Suspect]
     Active Substance: ESTROGENS, CONJUGATED
     Indication: HYSTERECTOMY
     Dosage: 0.9 MG, DAILY
     Dates: start: 2017
  2. PREMARIN [Suspect]
     Active Substance: ESTROGENS, CONJUGATED
     Dosage: 1 DF, 1X/DAY
     Route: 048
  3. PREMARIN [Suspect]
     Active Substance: ESTROGENS, CONJUGATED
     Indication: ARTIFICIAL MENOPAUSE
     Dosage: UNK
     Dates: start: 2018
  4. CALCIUM D3 [Concomitant]
     Active Substance: CALCIUM\CHOLECALCIFEROL
     Dosage: UNK
     Dates: start: 2017

REACTIONS (7)
  - Stress [Recovered/Resolved]
  - Feeling abnormal [Recovered/Resolved]
  - Fatigue [Recovered/Resolved]
  - Thinking abnormal [Recovered/Resolved]
  - Headache [Recovered/Resolved]
  - Heart rate increased [Recovered/Resolved]
  - Emotional disorder [Recovered/Resolved]

NARRATIVE: CASE EVENT DATE: 201902
